FAERS Safety Report 21039564 (Version 16)
Quarter: 2023Q4

REPORT INFORMATION
  Report Type: Spontaneous
  Country: US (occurrence: US)
  Receive Date: 20220704
  Receipt Date: 20231228
  Transmission Date: 20240110
  Serious: Yes (Other)
  Sender: FDA-Public Use
  Company Number: US-PFIZER INC-202101113950

PATIENT
  Age: 67 Year
  Sex: Female
  Weight: 70.295 kg

DRUGS (4)
  1. PREMARIN [Suspect]
     Active Substance: ESTROGENS, CONJUGATED
     Indication: Vulvovaginal dryness
     Dosage: THREE TIMES A WEEK, INSERT 0.5 APPLICATOR FULL EVERY DAY BY VAGINAL ROUTE AS DIRECTED FOR 90 DAYS
     Route: 067
  2. PREMARIN [Suspect]
     Active Substance: ESTROGENS, CONJUGATED
     Dosage: INSERT 0.5 APPLICATOR FULL EVERY DAY AS DIRECTED FOR 90 DAYS
     Route: 067
  3. PREMARIN [Suspect]
     Active Substance: ESTROGENS, CONJUGATED
     Dosage: INSERT 0.5 APPLICATOR(S)FUL TWICE A WEEK BY VAGINAL ROUTE AS DIRECTED FOR 90 DAYS
     Route: 067
  4. PREMARIN [Suspect]
     Active Substance: ESTROGENS, CONJUGATED
     Dosage: UNK, 2X/WEEK, (INSERT BY VAGINAL ROUTE TWICE WEEKLY)
     Route: 067

REACTIONS (4)
  - Hip arthroplasty [Unknown]
  - Off label use [Unknown]
  - Drug dispensed to wrong patient [Unknown]
  - Memory impairment [Unknown]
